FAERS Safety Report 17791020 (Version 1)
Quarter: 2020Q2

REPORT INFORMATION
  Report Type: Spontaneous
  Country: CA (occurrence: CA)
  Receive Date: 20200514
  Receipt Date: 20200514
  Transmission Date: 20200714
  Serious: Yes (Other)
  Sender: FDA-Public Use
  Company Number: CA-BAXTER-2020BAX009855

PATIENT

DRUGS (2)
  1. 10% DEXTROSE INJ [Suspect]
     Active Substance: DEXTROSE
     Indication: MEDICATION DILUTION
     Dosage: DOSAGE FORM: SOLUTION INTRAVENOUS
     Route: 051
  2. PRIMENE 10% [Suspect]
     Active Substance: AMINO ACIDS, SOURCE UNSPECIFIED
     Indication: PARENTERAL NUTRITION
     Dosage: DOSAGE FORM: LIQUID INTRAVENOUS
     Route: 051

REACTIONS (1)
  - Haematochezia [Unknown]
